FAERS Safety Report 4882469-1 (Version None)
Quarter: 2006Q1

REPORT INFORMATION
  Report Type: 
  Country: None (occurrence: None)
  Receive Date: 20060117
  Receipt Date: 20060109
  Transmission Date: 20060701
  Serious: Yes (Hospitalization, Congenital Anomaly)
  Sender: FDA-Public Use
  Company Number: KR-ABBOTT-06P-090-0321662-00

PATIENT
  Sex: Male

DRUGS (1)
  1. DEPAKENE [Suspect]
     Indication: DRUG EXPOSURE DURING PREGNANCY

REACTIONS (11)
  - BRACHYCEPHALY [None]
  - CONGENITAL JAW MALFORMATION [None]
  - CONGENITAL NOSE MALFORMATION [None]
  - CONGENITAL ORAL MALFORMATION [None]
  - FACIAL DYSMORPHISM [None]
  - FATIGUE [None]
  - FOETAL VALPROATE SYNDROME [None]
  - JOINT CONTRACTURE [None]
  - PALLOR [None]
  - RESPIRATORY RATE INCREASED [None]
  - TOE DEFORMITY [None]
